FAERS Safety Report 8143337-5 (Version None)
Quarter: 2012Q1

REPORT INFORMATION
  Report Type: 
  Country: None (occurrence: None)
  Receive Date: 20120217
  Receipt Date: 20120214
  Transmission Date: 20120608
  Serious: Yes (Other)
  Sender: FDA-Public Use
  Company Number: US-PFIZER INC-2007074327

PATIENT
  Sex: Female
  Weight: 65.306 kg

DRUGS (7)
  1. PROTEIN SUPPLEMENTS [Concomitant]
  2. XANAX [Suspect]
     Dosage: UNK
     Dates: start: 20000101, end: 20110101
  3. VICODIN [Concomitant]
     Dosage: UNK
  4. FOLIC ACID [Concomitant]
  5. VITAMIN TAB [Concomitant]
  6. MULTI-VITAMINS [Concomitant]
  7. LIBRIUM [Concomitant]
     Indication: IRRITABILITY

REACTIONS (9)
  - MENTAL IMPAIRMENT [None]
  - BLOOD POTASSIUM DECREASED [None]
  - HEART RATE DECREASED [None]
  - DISSOCIATION [None]
  - INSOMNIA [None]
  - FEELING ABNORMAL [None]
  - ABDOMINAL DISTENSION [None]
  - WEIGHT INCREASED [None]
  - FLUSHING [None]
